FAERS Safety Report 20963673 (Version 1)
Quarter: 2022Q2

REPORT INFORMATION
  Report Type: Spontaneous
  Country: IT (occurrence: IT)
  Receive Date: 20220615
  Receipt Date: 20220615
  Transmission Date: 20220720
  Serious: Yes (Other)
  Sender: FDA-Public Use
  Company Number: None

PATIENT

DRUGS (1)
  1. VOLTAREN [Suspect]
     Active Substance: DICLOFENAC SODIUM
     Indication: Product used for unknown indication
     Dosage: 50 MG, QD (SOLUBLE TABLETS)
     Route: 048
     Dates: start: 20220117, end: 20220127

REACTIONS (2)
  - Anaemia [Recovering/Resolving]
  - Substance abuse [Recovering/Resolving]

NARRATIVE: CASE EVENT DATE: 20220127
